FAERS Safety Report 6309362-1 (Version None)
Quarter: 2009Q3

REPORT INFORMATION
  Report Type: 
  Country: None (occurrence: None)
  Receive Date: 20090814
  Receipt Date: 20090805
  Transmission Date: 20100115
  Serious: No
  Sender: FDA-Public Use
  Company Number: US-JNJFOC-20090608396

PATIENT
  Sex: Female

DRUGS (2)
  1. NEUTROGENA T/GEL THERAPEUTIC SHAMPOO STUBBORN ITCH CONTROL [Suspect]
     Indication: DRUG USE FOR UNKNOWN INDICATION
     Route: 065
  2. MANY OTHER UNSPECIFIED MEDICATIONS [Concomitant]

REACTIONS (1)
  - RESPIRATORY DISORDER [None]
